FAERS Safety Report 5789954-9 (Version None)
Quarter: 2008Q2

REPORT INFORMATION
  Report Type: 
  Country: None (occurrence: None)
  Receive Date: 20080626
  Receipt Date: 20080409
  Transmission Date: 20081010
  Serious: No
  Sender: FDA-Public Use
  Company Number: A0709819A

PATIENT

DRUGS (1)
  1. ALLI [Suspect]
     Dates: start: 20071227

REACTIONS (5)
  - GASTROINTESTINAL SOUNDS ABNORMAL [None]
  - HEADACHE [None]
  - HUNGER [None]
  - WEIGHT FLUCTUATION [None]
  - WEIGHT INCREASED [None]
